FAERS Safety Report 23886730 (Version 1)
Quarter: 2024Q2

REPORT INFORMATION
  Report Type: Report from Study
  Country: US (occurrence: US)
  Receive Date: 20240522
  Receipt Date: 20240522
  Transmission Date: 20240716
  Serious: Yes (Other)
  Sender: FDA-Public Use
  Company Number: US-ABBVIE-5768514

PATIENT
  Sex: Male

DRUGS (1)
  1. SKYRIZI [Suspect]
     Active Substance: RISANKIZUMAB-RZAA
     Indication: Psoriasis
     Route: 058
     Dates: start: 20221025

REACTIONS (8)
  - Spinal operation [Unknown]
  - Psoriasis [Unknown]
  - Lymph gland infection [Unknown]
  - Cellulitis [Unknown]
  - Hepatic steatosis [Unknown]
  - Depressed mood [Unknown]
  - Therapeutic product effect decreased [Not Recovered/Not Resolved]
  - Hernia [Unknown]
